FAERS Safety Report 14382986 (Version 2)
Quarter: 2018Q2

REPORT INFORMATION
  Report Type: Spontaneous
  Country: US (occurrence: US)
  Receive Date: 20180114
  Receipt Date: 20180420
  Transmission Date: 20180711
  Serious: Yes (Hospitalization, Disabling)
  Sender: FDA-Public Use
  Company Number: US-ROCHE-2054400

PATIENT
  Age: 69 Year
  Sex: Male
  Weight: 136.2 kg

DRUGS (3)
  1. OCREVUS [Suspect]
     Active Substance: OCRELIZUMAB
     Dosage: SECOND HALF OF INFUSION
     Route: 042
     Dates: start: 20171128, end: 20171128
  2. OCREVUS [Suspect]
     Active Substance: OCRELIZUMAB
     Dosage: ONGOING: UNKNOWN
     Route: 042
  3. OCREVUS [Suspect]
     Active Substance: OCRELIZUMAB
     Indication: PRIMARY PROGRESSIVE MULTIPLE SCLEROSIS
     Dosage: FIRST HALF OF OCREVUS INFUSION?(ON DAY 1 AND DAY 14)
     Route: 042
     Dates: start: 20171114, end: 20171114

REACTIONS (4)
  - Intervertebral discitis [Recovered/Resolved]
  - Osteomyelitis [Recovered/Resolved]
  - Ill-defined disorder [Not Recovered/Not Resolved]
  - Gait inability [Not Recovered/Not Resolved]

NARRATIVE: CASE EVENT DATE: 201712
